FAERS Safety Report 4928507-9 (Version None)
Quarter: 2006Q1

REPORT INFORMATION
  Report Type: 
  Country: None (occurrence: None)
  Receive Date: 20060223
  Receipt Date: 20060217
  Transmission Date: 20060701
  Serious: Yes (Hospitalization)
  Sender: FDA-Public Use
  Company Number: DEWYE403117FEB06

PATIENT
  Age: 64 Year
  Sex: Female

DRUGS (1)
  1. TEVILOR RETARD (VENLAFAXINE HYDROCHLORIDE, CAPSULE, EXTENDED RELEASE, [Suspect]
     Indication: DEPRESSION
     Dosage: 225 MG PER DAY, ORAL
     Route: 048
     Dates: start: 20050101

REACTIONS (13)
  - DRUG WITHDRAWAL SYNDROME [None]
  - FATIGUE [None]
  - HEPATIC ENCEPHALOPATHY [None]
  - HEPATITIS TOXIC [None]
  - HYPERREFLEXIA [None]
  - MASKED FACIES [None]
  - MOOD ALTERED [None]
  - MOVEMENT DISORDER [None]
  - MUSCULOSKELETAL STIFFNESS [None]
  - NIGHT SWEATS [None]
  - POLLAKIURIA [None]
  - POVERTY OF SPEECH [None]
  - PSYCHOMOTOR RETARDATION [None]
